FAERS Safety Report 13932434 (Version 1)
Quarter: 2017Q3

REPORT INFORMATION
  Report Type: Spontaneous
  Country: DE (occurrence: DE)
  Receive Date: 20170904
  Receipt Date: 20170904
  Transmission Date: 20171127
  Serious: Yes (Disabling)
  Sender: FDA-Public Use
  Company Number: DE-TORRENT-00007023

PATIENT
  Sex: Male

DRUGS (1)
  1. OLANZAPIN HEUMANN [Suspect]
     Active Substance: OLANZAPINE

REACTIONS (3)
  - Nasal oedema [Unknown]
  - Facial bones fracture [Unknown]
  - Nasal septum deviation [Unknown]
